FAERS Safety Report 20982974 (Version 1)
Quarter: 2022Q2

REPORT INFORMATION
  Report Type: Spontaneous
  Country: HU (occurrence: HU)
  Receive Date: 20220620
  Receipt Date: 20220620
  Transmission Date: 20220720
  Serious: Yes (Hospitalization)
  Sender: FDA-Public Use
  Company Number: HU-BRISTOL-MYERS SQUIBB COMPANY-2022-056258

PATIENT
  Age: 50 Year
  Sex: Male

DRUGS (2)
  1. OPDIVO [Suspect]
     Active Substance: NIVOLUMAB
     Indication: Pleural mesothelioma
     Dosage: DOSE : OPDIVO+YERVOY 3MG/KG+1MG/KG;
     Route: 065
     Dates: start: 20220509
  2. YERVOY [Suspect]
     Active Substance: IPILIMUMAB
     Indication: Pleural mesothelioma
     Route: 065
     Dates: start: 20220509

REACTIONS (5)
  - Oedema peripheral [Unknown]
  - Mucosal atrophy [Unknown]
  - Rash maculo-papular [Unknown]
  - Hypoalbuminaemia [Unknown]
  - Off label use [Unknown]

NARRATIVE: CASE EVENT DATE: 20220516
